FAERS Safety Report 21753156 (Version 1)
Quarter: 2022Q4

REPORT INFORMATION
  Report Type: Spontaneous
  Country: US (occurrence: US)
  Receive Date: 20221220
  Receipt Date: 20221220
  Transmission Date: 20230113
  Serious: No
  Sender: FDA-Public Use
  Company Number: US-ABBVIE-4197162

PATIENT
  Weight: 130 kg

DRUGS (2)
  1. LEVOTHYROXINE [Suspect]
     Active Substance: LEVOTHYROXINE
     Indication: Hypothyroidism
     Dosage: DOSAGE 100 MCG
     Route: 048
  2. LEVOTHYROXINE [Suspect]
     Active Substance: LEVOTHYROXINE
     Indication: Hypothyroidism
     Route: 048

REACTIONS (5)
  - Weight increased [Unknown]
  - Blood thyroid stimulating hormone abnormal [Unknown]
  - Fatigue [Unknown]
  - Constipation [Unknown]
  - Laboratory test abnormal [Unknown]
